FAERS Safety Report 5572984-X (Version None)
Quarter: 2007Q4

REPORT INFORMATION
  Report Type: 
  Country: None (occurrence: None)
  Receive Date: 20071224
  Receipt Date: 20071217
  Transmission Date: 20080405
  Serious: Yes (Other)
  Sender: FDA-Public Use
  Company Number: GB-JNJFOC-20071204573

PATIENT
  Age: 69 Year
  Sex: Female
  Weight: 43 kg

DRUGS (13)
  1. SPORANOX [Suspect]
     Indication: ASPERGILLOMA
     Route: 048
  2. ACECLOFENAC [Concomitant]
  3. CANESTEN HC [Concomitant]
     Route: 065
  4. CARBOCISTEINE [Concomitant]
     Dosage: 10 ML
     Route: 048
  5. CO-CODAMOL [Concomitant]
     Route: 065
  6. DIPROBASE [Concomitant]
     Route: 065
  7. DOXYCYCLINE [Concomitant]
     Route: 065
  8. ITRACONAZOLE [Concomitant]
     Route: 065
  9. ACETAMINOPHEN [Concomitant]
     Route: 065
  10. PARAMAX [Concomitant]
     Route: 065
  11. ALBUTEROL [Concomitant]
     Route: 055
  12. SERETIDE [Concomitant]
     Route: 055
  13. ZOPICLONE [Concomitant]
     Route: 065

REACTIONS (1)
  - DYSPNOEA [None]
